FAERS Safety Report 18029310 (Version 1)
Quarter: 2020Q3

REPORT INFORMATION
  Report Type: Spontaneous
  Country: CN (occurrence: CN)
  Receive Date: 20200715
  Receipt Date: 20200715
  Transmission Date: 20201103
  Serious: Yes (Other)
  Sender: FDA-Public Use
  Company Number: CN-PFIZER INC-2020266531

PATIENT
  Age: 27 Year
  Sex: Female
  Weight: 73 kg

DRUGS (6)
  1. DACTINOMYCIN [Concomitant]
     Active Substance: DACTINOMYCIN
     Indication: NEOPLASM
     Dosage: 0.5 MG, DAILY
     Route: 041
     Dates: start: 20200523, end: 20200524
  2. METHOTREXATE. [Suspect]
     Active Substance: METHOTREXATE
     Indication: NEOPLASM
     Dosage: 150 MG, DAILY
     Route: 040
     Dates: start: 20200523, end: 20200523
  3. ETOPOSIDE. [Concomitant]
     Active Substance: ETOPOSIDE
     Indication: NEOPLASM
     Dosage: 150 MG, DAILY
     Route: 041
     Dates: start: 20200523, end: 20200524
  4. ETOPOSIDE. [Concomitant]
     Active Substance: ETOPOSIDE
     Indication: CHEMOTHERAPY
  5. METHOTREXATE. [Suspect]
     Active Substance: METHOTREXATE
     Indication: CHEMOTHERAPY
     Dosage: 300 MG, DAILY
     Route: 041
     Dates: start: 20200523, end: 20200523
  6. DACTINOMYCIN [Concomitant]
     Active Substance: DACTINOMYCIN
     Indication: CHEMOTHERAPY

REACTIONS (2)
  - Myelosuppression [Unknown]
  - Full blood count decreased [Recovering/Resolving]

NARRATIVE: CASE EVENT DATE: 20200527
